FAERS Safety Report 9316267 (Version 1)
Quarter: 2013Q2

REPORT INFORMATION
  Report Type: Spontaneous
  Country: FR (occurrence: None)
  Receive Date: 20130521
  Receipt Date: 20130521
  Transmission Date: 20140414
  Serious: Yes (Hospitalization)
  Sender: FDA-Public Use
  Company Number: DSM-2013-00471

PATIENT
  Age: 82 Year
  Sex: Female

DRUGS (12)
  1. OLMETEC (OLMESARTAN MEDOXOMIL) (40 MILLIGRAM TABLET) (OLMESARTAN MEDOXOMIL) [Suspect]
     Indication: HYPERTENSION
     Route: 048
     Dates: end: 20130226
  2. AMAREL [Suspect]
     Indication: TYPE 2 DIABETES MELLITUS
     Route: 048
     Dates: end: 20130226
  3. LOSARTAN POTASSIUM [Suspect]
     Indication: PRODUCT USED FOR UNKNOWN INDICATION
     Route: 048
  4. EUPHYLLINE [Suspect]
     Indication: PRODUCT USED FOR UNKNOWN INDICATION
     Route: 048
     Dates: start: 201302, end: 20130306
  5. LOVENOX (ENOXAPARIN SODIUM) (ENOXAPARIN SODIUM) [Concomitant]
  6. TOPALGIC (TRAMADOL HYDROCHLORIDE) (TRAMADOL HYDROCHLORIDE) [Concomitant]
  7. AMOXICILLIN (AMOXICILLIN) (AMOXICILLIN) [Concomitant]
  8. KARDEGIC (ACETYLSALICYLIC ACID, ACETYLSALICYLATE LYSINE) (75 MILLIGRAM) (ACETYLSALICYLIC ACID, ACETYLSALICYLATE LYSINE) [Concomitant]
  9. SPASFON (PHLOROGLUCINOL, TRIMETHYLPHLOROGLUCINOL) (PHLOROGLUCINOL, TRIMETHYLPHLOROGLUCINOL) [Concomitant]
  10. SEROPLEX (ESCITALOPRAM OXALATE) (ESCITALOPRAM OXALATE) [Concomitant]
  11. INEXIUM (ESOMEPRAZOLE MAGNESIUM) (ESOMEPRAZOLE MAGNESIUM) [Concomitant]
  12. MECIR LP (TAMSULOSIN HYDROCHLORIDE) (0.4 MILLIGRAM, PROLONGED-RELEASE TABLET) (TAMSULOSIN HYDROCHLORIDE) [Concomitant]

REACTIONS (6)
  - Pancreatic necrosis [None]
  - Sinus arrhythmia [None]
  - Urinary retention [None]
  - Asthenia [None]
  - Gait disturbance [None]
  - Headache [None]
